FAERS Safety Report 15300681 (Version 2)
Quarter: 2018Q3

REPORT INFORMATION
  Report Type: Report from Study
  Country: BR (occurrence: BR)
  Receive Date: 20180821
  Receipt Date: 20180918
  Transmission Date: 20181010
  Serious: Yes (Other)
  Sender: FDA-Public Use
  Company Number: PHHY2015BR113012

PATIENT
  Sex: Male
  Weight: 92 kg

DRUGS (5)
  1. EXJADE [Suspect]
     Active Substance: DEFERASIROX
     Indication: SICKLE CELL ANAEMIA
     Dosage: 1500 MG, (3 DF, 15 MG/KG), QD
     Route: 048
     Dates: start: 2011
  2. DIOVAN HCT [Concomitant]
     Active Substance: HYDROCHLOROTHIAZIDE\VALSARTAN
     Indication: HYPERTENSION
     Dosage: 1 DF, QD
     Route: 048
     Dates: start: 2009
  3. EXJADE [Suspect]
     Active Substance: DEFERASIROX
     Indication: MYELODYSPLASTIC SYNDROME
     Dosage: 1000 MG, QD
     Route: 048
  4. EXJADE [Suspect]
     Active Substance: DEFERASIROX
     Dosage: 500 MG, QD
     Route: 048
     Dates: end: 2018
  5. GRANULOKINE [Concomitant]
     Active Substance: FILGRASTIM
     Indication: MYELODYSPLASTIC SYNDROME
     Dosage: 10000 IU, 4 TIMES A WEEK
     Route: 058

REACTIONS (10)
  - Weight decreased [Not Recovered/Not Resolved]
  - Weight abnormal [Unknown]
  - Haemoglobin decreased [Recovering/Resolving]
  - Fatigue [Not Recovered/Not Resolved]
  - Asthenia [Unknown]
  - Blood creatinine increased [Recovering/Resolving]
  - Serum ferritin increased [Recovering/Resolving]
  - Blood urea increased [Unknown]
  - Renal disorder [Unknown]
  - Nephrolithiasis [Unknown]
